FAERS Safety Report 7133266-8 (Version None)
Quarter: 2010Q4

REPORT INFORMATION
  Report Type: 
  Country: None (occurrence: None)
  Receive Date: 20101202
  Receipt Date: 20101119
  Transmission Date: 20110411
  Serious: Yes (Hospitalization)
  Sender: FDA-Public Use
  Company Number: US-ELI_LILLY_AND_COMPANY-US201004007873

PATIENT
  Sex: Female

DRUGS (20)
  1. FORTEO [Suspect]
     Indication: OSTEOPOROSIS
     Dosage: 20 UG, DAILY (1/D)
     Dates: start: 20090601
  2. ASPIRIN [Concomitant]
     Dosage: 81 MG, DAILY (1/D)
     Dates: start: 20070101
  3. MIRAPEX [Concomitant]
     Dosage: UNK, EACH EVENING
     Dates: start: 20090101
  4. CALCIUM [Concomitant]
     Dosage: 1200 MG, DAILY (1/D)
     Dates: start: 20090601
  5. IRON [Concomitant]
     Dosage: 325 MG, DAILY (1/D)
     Dates: start: 20070101
  6. VITAMIN D [Concomitant]
     Dosage: 50000 U, WEEKLY (1/W)
     Dates: start: 20090601
  7. LASIX [Concomitant]
     Dosage: 40 MG, DAILY (1/D)
     Dates: start: 20100401
  8. LASIX [Concomitant]
     Dosage: 5 MG, WEEKLY (1/W)
     Dates: start: 20100401
  9. POTASSIUM CHLORIDE [Concomitant]
     Dosage: 10 MG, DAILY (1/D)
     Dates: start: 20100401
  10. PRAVACHOL [Concomitant]
     Indication: BLOOD CHOLESTEROL
     Dosage: 40 MG, EACH EVENING
  11. CARAFATE [Concomitant]
     Indication: GASTRIC ULCER
     Dosage: 1 G, 3/D
     Dates: start: 20070101
  12. PRILOSEC [Concomitant]
     Dosage: 20 MG, DAILY (1/D)
  13. ALBUTEROL [Concomitant]
     Dosage: UNK, 4/D
     Dates: start: 20080101
  14. NITRO/00003201/ [Concomitant]
     Dosage: UNK, AS NEEDED
  15. SPIRIVA [Concomitant]
     Dosage: UNK, DAILY (1/D)
     Dates: start: 20080101
  16. SYNTHROID [Concomitant]
     Dosage: 50 UG, DAILY (1/D)
     Dates: start: 19990101
  17. LAMICTAL [Concomitant]
     Dosage: 150 MG, DAILY (1/D)
     Dates: start: 20030101
  18. PHENERGAN [Concomitant]
     Dosage: 25 MG, EACH MORNING
     Dates: start: 19980101
  19. VALIUM [Concomitant]
     Dosage: 5 MG, 2/D
     Dates: start: 20030101
  20. LOVAZA [Concomitant]
     Dosage: UNK, DAILY (1/D)

REACTIONS (14)
  - BLOOD MAGNESIUM DECREASED [None]
  - BLOOD POTASSIUM DECREASED [None]
  - CHEST PAIN [None]
  - HYPERTENSION [None]
  - INJECTION SITE HAEMATOMA [None]
  - INJECTION SITE HAEMORRHAGE [None]
  - INJECTION SITE PAIN [None]
  - JOINT SWELLING [None]
  - NAUSEA [None]
  - OEDEMA PERIPHERAL [None]
  - PAIN IN EXTREMITY [None]
  - PULMONARY OEDEMA [None]
  - VISUAL ACUITY REDUCED [None]
  - VITAMIN D DECREASED [None]
